FAERS Safety Report 14680063 (Version 1)
Quarter: 2018Q1

REPORT INFORMATION
  Report Type: Spontaneous
  Country: US (occurrence: US)
  Receive Date: 20180325
  Receipt Date: 20180325
  Transmission Date: 20180509
  Serious: Yes (Other)
  Sender: FDA-Public Use
  Company Number: None

PATIENT
  Age: 46 Year
  Sex: Female
  Weight: 49.5 kg

DRUGS (7)
  1. ADDERALL [Concomitant]
     Active Substance: AMPHETAMINE ASPARTATE\AMPHETAMINE SULFATE\DEXTROAMPHETAMINE SACCHARATE\DEXTROAMPHETAMINE SULFATE
  2. TOPAMAX [Concomitant]
     Active Substance: TOPIRAMATE
  3. PLAQUENIL [Concomitant]
     Active Substance: HYDROXYCHLOROQUINE SULFATE
  4. MMONTEKAST [Concomitant]
  5. FLEXERIL [Concomitant]
     Active Substance: CYCLOBENZAPRINE HYDROCHLORIDE
  6. TYLENOL/ASPIRIN COMBO [Concomitant]
  7. IBUPROFEN 800 MG [Suspect]
     Active Substance: IBUPROFEN
     Indication: POLYARTHRITIS
     Dosage: ?          QUANTITY:60 TABLET(S);?
     Route: 048
     Dates: start: 20180313, end: 20180322

REACTIONS (4)
  - Swelling [None]
  - Feeling abnormal [None]
  - Depressed mood [None]
  - Product quality issue [None]

NARRATIVE: CASE EVENT DATE: 20180324
